FAERS Safety Report 5262220-6 (Version None)
Quarter: 2007Q1

REPORT INFORMATION
  Report Type: 
  Country: None (occurrence: None)
  Receive Date: 20070312
  Receipt Date: 20070307
  Transmission Date: 20070707
  Serious: Yes (Other)
  Sender: FDA-Public Use
  Company Number: US-BAYER-200710382BCC

PATIENT
  Age: 69 Year
  Sex: Male
  Weight: 75 kg

DRUGS (7)
  1. ASPIRIN [Suspect]
     Indication: DRUG USE FOR UNKNOWN INDICATION
     Dosage: TOTAL DAILY DOSE: 81 MG  UNIT DOSE: 81 MG
     Route: 048
     Dates: start: 20051001
  2. ASPIRIN [Suspect]
     Dosage: TOTAL DAILY DOSE: 20.25 MG  UNIT DOSE: 81 MG
     Route: 048
  3. ASPIRIN [Suspect]
     Indication: DRUG USE FOR UNKNOWN INDICATION
  4. PLAVIX [Concomitant]
  5. ATENOLOL [Concomitant]
  6. ENALAPRIL MALEATE [Concomitant]
  7. VYTORIN [Concomitant]

REACTIONS (1)
  - MYOCARDIAL INFARCTION [None]
